FAERS Safety Report 9227918 (Version 1)
Quarter: 2013Q2

REPORT INFORMATION
  Report Type: Spontaneous
  Country: US (occurrence: US)
  Receive Date: 20130412
  Receipt Date: 20130412
  Transmission Date: 20140414
  Serious: Yes (Disabling)
  Sender: FDA-Public Use
  Company Number: US-PFIZER INC-2013114847

PATIENT
  Age: 49 Year
  Sex: Female
  Weight: 112 kg

DRUGS (5)
  1. LYRICA [Suspect]
     Indication: FIBROMYALGIA
     Dosage: 150 MG, 2X/DAY
     Dates: start: 2011
  2. MORPHINE SULFATE [Suspect]
     Indication: PAIN
     Dosage: 30 MG, 2X/DAY
  3. CYMBALTA [Suspect]
     Indication: PAIN
     Dosage: 30 MG, 2X/DAY
  4. VICODIN [Suspect]
     Indication: PAIN
     Dosage: 500 MG DAILY
  5. PROAIR HFA [Concomitant]
     Indication: DYSPNOEA
     Dosage: UNK

REACTIONS (3)
  - Pain [Not Recovered/Not Resolved]
  - Gait disturbance [Not Recovered/Not Resolved]
  - Drug ineffective [Unknown]
